FAERS Safety Report 5332174-2 (Version None)
Quarter: 2007Q2

REPORT INFORMATION
  Report Type: 
  Country: None (occurrence: None)
  Receive Date: 20070518
  Receipt Date: 20070507
  Transmission Date: 20071010
  Serious: Yes (Hospitalization)
  Sender: FDA-Public Use
  Company Number: 232844K07USA

PATIENT
  Age: 56 Year
  Sex: Female

DRUGS (7)
  1. REBIF [Suspect]
     Indication: MULTIPLE SCLEROSIS
     Dosage: SEE IMAGE
     Route: 058
     Dates: start: 20070206, end: 20070306
  2. REBIF [Suspect]
     Indication: MULTIPLE SCLEROSIS
     Dosage: SEE IMAGE
     Route: 058
     Dates: start: 20070307, end: 20070312
  3. REBIF [Suspect]
     Indication: MULTIPLE SCLEROSIS
     Dosage: SEE IMAGE
     Route: 058
     Dates: start: 20070312
  4. VASOTEC [Concomitant]
  5. GLUCOPHAGE [Concomitant]
  6. GLUCOTROL [Concomitant]
  7. ACTOS [Concomitant]

REACTIONS (6)
  - BALANCE DISORDER [None]
  - CLAVICLE FRACTURE [None]
  - DIZZINESS [None]
  - FALL [None]
  - HIP FRACTURE [None]
  - HUMERUS FRACTURE [None]
